FAERS Safety Report 25026592 (Version 2)
Quarter: 2025Q1

REPORT INFORMATION
  Report Type: Spontaneous
  Country: US (occurrence: US)
  Receive Date: 20250301
  Receipt Date: 20250324
  Transmission Date: 20250409
  Serious: No
  Sender: CSL BEHRING
  Company Number: US-BEH-2025196872

PATIENT
  Age: 66 Year
  Sex: Female

DRUGS (11)
  1. HIZENTRA [Suspect]
     Active Substance: HUMAN IMMUNOGLOBULIN G
     Indication: Immunodeficiency common variable
     Dosage: 2G (10 ML)+10G (50ML) ? 12G TOTAL, QW
     Route: 058
     Dates: start: 20250218
  2. HIZENTRA [Suspect]
     Active Substance: HUMAN IMMUNOGLOBULIN G
     Dosage: 2G (10 ML)+10G (50ML) ? 12G TOTAL, QW
     Route: 058
     Dates: start: 20250218
  3. HIZENTRA [Suspect]
     Active Substance: HUMAN IMMUNOGLOBULIN G
     Dosage: 12 G
     Route: 065
  4. NASACORT ALLERGY 24HR [Concomitant]
     Active Substance: TRIAMCINOLONE ACETONIDE
  5. VITAMIN C [Concomitant]
     Active Substance: ASCORBIC ACID
     Dosage: 100 MG, QD
  6. BIOTIN [Concomitant]
     Active Substance: BIOTIN
     Dosage: 5000MCG
  7. SELENIUM [Concomitant]
     Active Substance: SELENIUM
     Dosage: 200MCG, QD
  8. ZINC [Concomitant]
     Active Substance: ZINC
     Dosage: 66 MG, QD
  9. VITAMIN E [Concomitant]
     Active Substance: .ALPHA.-TOCOPHEROL
     Dosage: 400 IU, QD
  10. VITAMIN D [Concomitant]
     Active Substance: VITAMIN D NOS
     Dosage: 25MCG, QD
  11. TUMS [Concomitant]
     Active Substance: CALCIUM CARBONATE

REACTIONS (5)
  - Drug hypersensitivity [Recovered/Resolved]
  - Injection site rash [Recovered/Resolved]
  - Rash [Recovered/Resolved]
  - Urticaria [Recovered/Resolved]
  - Injection site reaction [Unknown]

NARRATIVE: CASE EVENT DATE: 20250218
